FAERS Safety Report 10061526 (Version 2)
Quarter: 2014Q2

REPORT INFORMATION
  Report Type: Other
  Country: DE (occurrence: DE)
  Receive Date: 20140407
  Receipt Date: 20140415
  Transmission Date: 20141212
  Serious: Yes (Hospitalization)
  Sender: FDA-Public Use
  Company Number: DE-LUPIN PHARMACEUTICALS INC.-2014-00889

PATIENT
  Sex: Female

DRUGS (2)
  1. LEVETIRACETAM-HORMOSAN 500MG FILMCOATED [Suspect]
     Indication: EPILEPSY
     Route: 065
  2. VALPROIC ACID [Concomitant]
     Indication: PRODUCT USED FOR UNKNOWN INDICATION
     Route: 065

REACTIONS (11)
  - Syncope [Unknown]
  - Convulsion [Unknown]
  - Daydreaming [Unknown]
  - Malaise [Unknown]
  - Agitation [Unknown]
  - Breath sounds [Unknown]
  - Mental impairment [Unknown]
  - Dyskinesia [Unknown]
  - Aphasia [Unknown]
  - Angiopathy [Unknown]
  - Drug ineffective [Unknown]
